FAERS Safety Report 7415172 (Version 2)
Quarter: 2014Q1

REPORT INFORMATION
  Report Type: Spontaneous
  Country: US (occurrence: US)
  Receive Date: 20100610
  Receipt Date: 20140123
  Transmission Date: 20141002
  Serious: Yes (Other)
  Sender: FDA-Public Use
  Company Number: US-JNJFOC-20100602431

PATIENT
  Sex: Female
  Weight: 113.4 kg

DRUGS (3)
  1. DURAGESIC [Suspect]
     Indication: SPINAL PAIN
     Route: 062
     Dates: start: 2000, end: 2009
  2. DURAGESIC [Suspect]
     Indication: SPINAL PAIN
     Route: 062
     Dates: start: 2009
  3. MANY OTHER UNSPECIFIED MEDICATIONS [Concomitant]
     Indication: PRODUCT USED FOR UNKNOWN INDICATION
     Route: 065

REACTIONS (9)
  - Cardiac murmur [Not Recovered/Not Resolved]
  - Type 2 diabetes mellitus [Not Recovered/Not Resolved]
  - Product quality issue [Unknown]
  - Activities of daily living impaired [Not Recovered/Not Resolved]
  - Wrong technique in drug usage process [Recovered/Resolved]
  - Pain [Not Recovered/Not Resolved]
  - Feeling abnormal [Not Recovered/Not Resolved]
  - Product quality issue [Unknown]
  - Application site reaction [Recovered/Resolved]
